FAERS Safety Report 9309068 (Version 2)
Quarter: 2013Q3

REPORT INFORMATION
  Report Type: Spontaneous
  Country: PH (occurrence: PH)
  Receive Date: 20130525
  Receipt Date: 20130701
  Transmission Date: 20140515
  Serious: Yes (Death, Hospitalization, Other)
  Sender: FDA-Public Use
  Company Number: PH-009507513-1305PHL012877

PATIENT
  Sex: Male

DRUGS (1)
  1. JANUMET [Suspect]
     Dosage: UNK
     Route: 048
     Dates: end: 20121205

REACTIONS (3)
  - Hyperlipidaemia [Fatal]
  - Diabetic complication [Fatal]
  - Cerebrovascular accident [Unknown]
